FAERS Safety Report 11071931 (Version 1)
Quarter: 2015Q2

REPORT INFORMATION
  Report Type: Spontaneous
  Country: PL (occurrence: None)
  Receive Date: 20150424
  Receipt Date: 20150424
  Transmission Date: 20150821
  Serious: Yes (Other)
  Sender: FDA-Public Use
  Company Number: 2015-11104

PATIENT
  Age: 68 Year
  Sex: Female

DRUGS (3)
  1. POVIDONE IODINE [Suspect]
     Active Substance: POVIDONE-IODINE
  2. EYLEA [Suspect]
     Active Substance: AFLIBERCEPT
     Indication: MACULAR DEGENERATION
     Dates: start: 20141003, end: 20141209
  3. FLOXAL (OFLOXACIN) [Concomitant]

REACTIONS (4)
  - Vitreous opacities [None]
  - Visual impairment [None]
  - Ocular discomfort [None]
  - Retinal infiltrates [None]

NARRATIVE: CASE EVENT DATE: 20150128
